FAERS Safety Report 8763184 (Version 1)
Quarter: 2012Q4

REPORT INFORMATION
  Report Type: 
  Country: US (occurrence: US)
  Receive Date: 20120831
  Receipt Date: 20120831
  Transmission Date: 20130627
  Serious: No
  Sender: FDA-Public Use
  Company Number: US-PFIZER INC-2012212645

PATIENT
  Age: 55 Year
  Sex: Female
  Weight: 113 kg

DRUGS (8)
  1. ARTHROTEC [Suspect]
     Indication: ARTHRITIS
     Dosage: 50 mg
     Route: 048
     Dates: start: 201206
  2. ARTHROTEC [Suspect]
     Dosage: 2x/day
     Dates: end: 2012
  3. ARTHROTEC [Suspect]
     Dosage: 75 mg
  4. TRAMADOL HYDROCHLORIDE [Suspect]
     Dosage: UNK
  5. MOTRIN [Suspect]
     Dosage: UNK
  6. LORTAB [Suspect]
     Indication: ARTHRITIS
     Dosage: 325 mg, as needed
  7. PRAVACHOL [Concomitant]
     Indication: BLOOD CHOLESTEROL ABNORMAL
     Dosage: 40 mg, daily
  8. LOSARTAN [Concomitant]
     Dosage: UNK

REACTIONS (2)
  - Abdominal discomfort [Unknown]
  - Feeling abnormal [Unknown]
